FAERS Safety Report 18235485 (Version 1)
Quarter: 2020Q3

REPORT INFORMATION
  Report Type: Spontaneous
  Country: GB (occurrence: GB)
  Receive Date: 20200905
  Receipt Date: 20200905
  Transmission Date: 20201103
  Serious: Yes (Other)
  Sender: FDA-Public Use
  Company Number: GB-NOVITIUMPHARMA-2020GBNVP00033

PATIENT
  Age: 63 Year
  Sex: Male

DRUGS (3)
  1. ACYCLOVIR. [Suspect]
     Active Substance: ACYCLOVIR
     Indication: VARICELLA ZOSTER VIRUS INFECTION
     Route: 042
  2. ACYCLOVIR. [Suspect]
     Active Substance: ACYCLOVIR
  3. FOSCARNET (FOSCARNET) [Suspect]
     Active Substance: FOSCARNET
     Indication: VARICELLA ZOSTER VIRUS INFECTION
     Dosage: 2.4MG/ML
     Route: 031

REACTIONS (6)
  - Acute kidney injury [Recovering/Resolving]
  - Retinoschisis [Recovering/Resolving]
  - Macular detachment [Unknown]
  - Vitritis [Recovering/Resolving]
  - Subretinal hyperreflective exudation [Recovering/Resolving]
  - Retinal thickening [Recovering/Resolving]
